FAERS Safety Report 5498012-2 (Version None)
Quarter: 2007Q4

REPORT INFORMATION
  Report Type: 
  Country: None (occurrence: None)
  Receive Date: 20071018
  Receipt Date: 20060828
  Transmission Date: 20080405
  Serious: Yes (Other)
  Sender: FDA-Public Use
  Company Number: 2006097547

PATIENT
  Age: 83 Year
  Sex: Male
  Weight: 70.3075 kg

DRUGS (7)
  1. NEURONTIN [Suspect]
     Indication: SPINAL COLUMN STENOSIS
     Dosage: 400 MG (200 MG, 2 IN 1 D)
     Dates: start: 20060803
  2. NEURONTIN [Suspect]
     Indication: SPINAL COLUMN STENOSIS
     Dosage: 600 MG (200 MG, 3 IN 1 D)
     Dates: start: 20060803
  3. CODEINE SUL TAB [Concomitant]
  4. LIPITOR [Concomitant]
  5. OXYBUTYNIN CHLORIDE [Concomitant]
  6. ACETYLSALICYLIC ACID SRT [Concomitant]
  7. ALL OTHER THERAPEUTIC PRODUCTS (ALL OTHER THERAPEUTIC PRODUCTS) [Concomitant]

REACTIONS (6)
  - DIPLOPIA [None]
  - DRUG INEFFECTIVE [None]
  - FALL [None]
  - GAIT DISTURBANCE [None]
  - JOINT SWELLING [None]
  - SOMNOLENCE [None]
